FAERS Safety Report 25847171 (Version 1)
Quarter: 2025Q3

REPORT INFORMATION
  Report Type: Spontaneous
  Country: GB (occurrence: GB)
  Receive Date: 20250925
  Receipt Date: 20250925
  Transmission Date: 20251021
  Serious: Yes (Hospitalization)
  Sender: VERTEX
  Company Number: GB-VERTEX PHARMACEUTICALS-2025-015630

PATIENT
  Sex: Female

DRUGS (1)
  1. ELEXACAFTOR\IVACAFTOR\TEZACAFTOR [Suspect]
     Active Substance: ELEXACAFTOR\IVACAFTOR\TEZACAFTOR
     Indication: Cystic fibrosis
     Dosage: REDUCED - 75MG IVACAFTOR/50MG TEZACAFTOR/ 100MG ELEXACAFTOR, ONE TABLET IN THE MORNING
     Route: 048
     Dates: end: 20250917

REACTIONS (1)
  - Infective pulmonary exacerbation of cystic fibrosis [Unknown]
